FAERS Safety Report 7441001-9 (Version None)
Quarter: 2011Q2

REPORT INFORMATION
  Report Type: 
  Country: None (occurrence: None)
  Receive Date: 20110427
  Receipt Date: 20080328
  Transmission Date: 20111010
  Serious: Yes (Disabling, Other)
  Sender: FDA-Public Use
  Company Number: US-BAYER-200818415NA

PATIENT
  Age: 55 Year
  Sex: Male
  Weight: 116.55 kg

DRUGS (22)
  1. TRASYLOL [Suspect]
     Indication: AORTIC SURGERY
     Dosage: 1 ML TEST DOSE
     Route: 042
     Dates: start: 20050616
  2. PLASMA [Concomitant]
     Dosage: 4 UNITS
     Route: 042
     Dates: start: 20050616
  3. DOPAMINE HCL [Concomitant]
     Dosage: 2MCG/KG/MIN
     Route: 042
     Dates: start: 20050616
  4. LASIX [Concomitant]
     Dosage: 30 MG
     Route: 042
     Dates: start: 20050616
  5. LEVOPHED [Concomitant]
     Indication: HYPERTENSION
     Dosage: 2MCG/KG/MIN
     Dates: start: 20050616
  6. NIPRIDE [Concomitant]
     Indication: HYPERTENSION
     Dosage: MG/KG AT 50MCG/MINUTE
     Route: 042
     Dates: start: 20050616
  7. LABETALOL [Concomitant]
     Dosage: UNK
     Dates: start: 20050616
  8. AUGMENTIN [Concomitant]
     Indication: BRONCHITIS
     Dosage: 500 MG, BID
     Dates: start: 20050501
  9. INSULIN [INSULIN] [Concomitant]
     Dosage: 1.3 U/HOUR
     Route: 042
     Dates: start: 20050616
  10. TRASYLOL [Suspect]
     Dosage: 200 CC LOADING DOSE
     Route: 042
     Dates: start: 20050616
  11. LIPITOR [Concomitant]
     Indication: HYPERCHOLESTEROLAEMIA
     Dosage: 20 MG, QD
  12. ASPIRIN [Concomitant]
     Dosage: 81 MG, QD
  13. ZITHROMAX [Concomitant]
     Indication: BRONCHITIS
     Dosage: UNK
     Dates: start: 20050501
  14. TRASYLOL [Suspect]
     Dosage: 200 ML VIA CARDIOPULMONARY BYPASS
     Route: 050
     Dates: start: 20050616
  15. TRASYLOL [Suspect]
     Dosage: 50ML/HOUR
     Route: 041
     Dates: start: 20050616
  16. HEPARIN [Concomitant]
     Dosage: 45,000 U
     Dates: start: 20050616
  17. VANCOMYCIN [Concomitant]
     Dosage: 1 GM
     Route: 042
     Dates: start: 20050616
  18. RED BLOOD CELLS [Concomitant]
     Dosage: 2 U
     Route: 042
     Dates: start: 20050616
  19. ACCUPRIL [Concomitant]
     Indication: HYPERTENSION
     Dosage: 20 MG, QD
     Dates: start: 20000101
  20. DECADRON A [Concomitant]
     Dosage: 16 MG
     Dates: start: 20050616
  21. PROTAMINE SULFATE [Concomitant]
     Dosage: 100 MG
     Route: 042
     Dates: start: 20050616
  22. MANNITOL [Concomitant]
     Dosage: 50 GM
     Route: 042
     Dates: start: 20050616

REACTIONS (11)
  - CEREBRAL INFARCTION [None]
  - VISUAL ACUITY REDUCED [None]
  - ADVERSE EVENT [None]
  - HAEMORRHAGE [None]
  - PAIN [None]
  - ACTIVITIES OF DAILY LIVING IMPAIRED [None]
  - ANHEDONIA [None]
  - INJURY [None]
  - RENAL FAILURE [None]
  - CEREBROVASCULAR ACCIDENT [None]
  - ANXIETY [None]
